FAERS Safety Report 25808681 (Version 1)
Quarter: 2025Q3

REPORT INFORMATION
  Report Type: Spontaneous
  Country: CH (occurrence: CH)
  Receive Date: 20250916
  Receipt Date: 20250916
  Transmission Date: 20251020
  Serious: Yes (Other)
  Sender: AMGEN
  Company Number: CH-AMGEN-CHESP2025181911

PATIENT

DRUGS (2)
  1. BEVACIZUMAB [Suspect]
     Active Substance: BEVACIZUMAB
     Indication: Neovascular age-related macular degeneration
  2. FARICIMAB [Suspect]
     Active Substance: FARICIMAB
     Indication: Neovascular age-related macular degeneration

REACTIONS (11)
  - Acute coronary syndrome [Unknown]
  - Endophthalmitis [Unknown]
  - Optic ischaemic neuropathy [Unknown]
  - Detachment of retinal pigment epithelium [Unknown]
  - Retinal haemorrhage [Unknown]
  - Vitreoretinal traction syndrome [Unknown]
  - Anterior chamber disorder [Unknown]
  - Eye inflammation [Unknown]
  - Fibrosis [Unknown]
  - Intraocular pressure increased [Unknown]
  - Off label use [Unknown]
